FAERS Safety Report 4827765-9 (Version None)
Quarter: 2005Q4

REPORT INFORMATION
  Report Type: 
  Country: None (occurrence: None)
  Receive Date: 20051110
  Receipt Date: 20051031
  Transmission Date: 20060501
  Serious: Yes (Hospitalization, Other)
  Sender: FDA-Public Use
  Company Number: 2005S1000198

PATIENT
  Age: 45 Year
  Sex: Female
  Weight: 75 kg

DRUGS (24)
  1. CUBICIN [Suspect]
     Indication: ENTEROCOCCAL BACTERAEMIA
     Dosage: 550 MG;Q24H;IV
     Route: 042
     Dates: start: 20050829, end: 20050908
  2. INSULIN [Concomitant]
  3. DILTIAZEM HCL [Concomitant]
  4. NOREPINEPHRINE [Concomitant]
  5. PROMETHAZINE [Concomitant]
  6. CALCIUM GLUCONATE [Concomitant]
  7. MEROPENEM [Concomitant]
  8. CASPOFUNGIN [Concomitant]
  9. METRONIDAZOLE [Concomitant]
  10. LEVOFLOXACIN [Concomitant]
  11. ACYCLOVIR [Concomitant]
  12. HYDROCORTISONE [Concomitant]
  13. FILGRASTIM [Concomitant]
  14. AMIODARONE [Concomitant]
  15. MAGNESIUM [Concomitant]
  16. MIDAZOLAM [Concomitant]
  17. FENTANYL [Concomitant]
  18. VANCOMYCIN [Concomitant]
  19. LINEZOLID [Concomitant]
  20. AZITHROMYCIN [Concomitant]
  21. TOBRAMYCIN [Concomitant]
  22. CEFTRIAXONE [Concomitant]
  23. AZTREONAM [Concomitant]
  24. CHEMOTHERAPY [Concomitant]

REACTIONS (15)
  - BLOOD CALCIUM DECREASED [None]
  - BLOOD CHLORIDE INCREASED [None]
  - CARBON DIOXIDE DECREASED [None]
  - DECREASED ACTIVITY [None]
  - DRUG INEFFECTIVE [None]
  - FLUID OVERLOAD [None]
  - HAEMATOCRIT DECREASED [None]
  - HAEMOGLOBIN DECREASED [None]
  - INTERNATIONAL NORMALISED RATIO INCREASED [None]
  - PLATELET COUNT DECREASED [None]
  - PLEURAL EFFUSION [None]
  - PULMONARY OEDEMA [None]
  - RENAL IMPAIRMENT [None]
  - RHABDOMYOLYSIS [None]
  - WHITE BLOOD CELL COUNT DECREASED [None]
